FAERS Safety Report 7749795-X (Version None)
Quarter: 2011Q3

REPORT INFORMATION
  Report Type: 
  Country: None (occurrence: None)
  Receive Date: 20110914
  Receipt Date: 20110902
  Transmission Date: 20111222
  Serious: Yes (Hospitalization, Disabling, Other)
  Sender: FDA-Public Use
  Company Number: JP-SANOFI-AVENTIS-2011SA041269

PATIENT
  Age: 72 Year
  Sex: Male
  Weight: 69 kg

DRUGS (11)
  1. OXALIPLATIN [Suspect]
     Indication: RECTAL CANCER
     Route: 041
     Dates: start: 20101213, end: 20110323
  2. MAGNESIUM SULFATE [Concomitant]
     Indication: PREMEDICATION
     Route: 041
     Dates: start: 20101213, end: 20110323
  3. GRANISETRON [Concomitant]
     Indication: PREMEDICATION
     Route: 041
     Dates: start: 20101213, end: 20110323
  4. ZANTAC [Concomitant]
     Indication: PREMEDICATION
     Route: 041
     Dates: start: 20101213, end: 20110323
  5. EFUDEX [Suspect]
     Indication: RECTAL CANCER
     Route: 040
     Dates: start: 20101213, end: 20110323
  6. AVASTIN [Suspect]
     Indication: RECTAL CANCER
     Route: 041
     Dates: start: 20101213, end: 20110323
  7. LEUCOVORIN CALCIUM [Concomitant]
     Indication: RECTAL CANCER
     Route: 041
     Dates: start: 20101213, end: 20110323
  8. CALCIUM CARBONATE [Concomitant]
     Indication: PREMEDICATION
     Dates: start: 20101213, end: 20110323
  9. EFUDEX [Suspect]
     Route: 041
     Dates: start: 20101213, end: 20110323
  10. DEXAMETHASONE SODIUM PHOSPHATE [Concomitant]
     Indication: PREMEDICATION
     Route: 041
     Dates: start: 20101213, end: 20110323
  11. VOGLIBOSE [Concomitant]
     Indication: TYPE 2 DIABETES MELLITUS
     Route: 048

REACTIONS (4)
  - STOMATITIS [None]
  - PALMAR-PLANTAR ERYTHRODYSAESTHESIA SYNDROME [None]
  - GASTROINTESTINAL NECROSIS [None]
  - RENAL IMPAIRMENT [None]
